FAERS Safety Report 21948769 (Version 1)
Quarter: 2023Q1

REPORT INFORMATION
  Report Type: Spontaneous
  Country: FR (occurrence: FR)
  Receive Date: 20230203
  Receipt Date: 20230203
  Transmission Date: 20230417
  Serious: Yes (Life-Threatening)
  Sender: FDA-Public Use
  Company Number: FR-AFSSAPS-AVMA2023000005

PATIENT
  Age: 24 Year
  Sex: Male

DRUGS (6)
  1. MORPHINE [Suspect]
     Active Substance: MORPHINE
     Indication: Product used for unknown indication
     Dosage: UNK
     Route: 065
  2. HYDROXYZINE HYDROCHLORIDE [Suspect]
     Active Substance: HYDROXYZINE HYDROCHLORIDE
     Indication: Product used for unknown indication
     Dosage: UNK
     Route: 065
  3. OXAZEPAM [Suspect]
     Active Substance: OXAZEPAM
     Indication: Product used for unknown indication
     Dosage: UNK
     Route: 065
  4. DOXYLAMINE SUCCINATE [Suspect]
     Active Substance: DOXYLAMINE SUCCINATE
     Indication: Product used for unknown indication
     Dosage: UNK
     Route: 065
  5. CODEINE [Suspect]
     Active Substance: CODEINE
     Indication: Product used for unknown indication
     Dosage: UNK
     Route: 065
  6. PROPOFOL [Suspect]
     Active Substance: PROPOFOL
     Indication: Product used for unknown indication
     Dosage: UNK
     Route: 065

REACTIONS (5)
  - Hypoventilation [Recovered/Resolved]
  - Respiratory acidosis [Recovered/Resolved]
  - Coma [Recovered/Resolved]
  - Poisoning [Recovered/Resolved]
  - Miosis [Recovered/Resolved]
